FAERS Safety Report 6332495-0 (Version None)
Quarter: 2009Q3

REPORT INFORMATION
  Report Type: 
  Country: None (occurrence: None)
  Receive Date: 20090828
  Receipt Date: 20080909
  Transmission Date: 20100115
  Serious: No
  Sender: FDA-Public Use
  Company Number: A0746806A

PATIENT
  Age: 34 Year
  Sex: Male

DRUGS (3)
  1. MALARONE [Suspect]
     Indication: MALARIA
     Dosage: 1TAB PER DAY
     Route: 048
     Dates: start: 20080720, end: 20080826
  2. ALLEGRA [Concomitant]
  3. RHINOCORT [Concomitant]

REACTIONS (3)
  - HOT FLUSH [None]
  - PAIN [None]
  - PYREXIA [None]
